FAERS Safety Report 15411737 (Version 1)
Quarter: 2018Q3

REPORT INFORMATION
  Report Type: Report from Study
  Country: US (occurrence: US)
  Receive Date: 20180921
  Receipt Date: 20180921
  Transmission Date: 20181010
  Serious: No
  Sender: FDA-Public Use
  Company Number: PHHY2018US103475

PATIENT
  Age: 53 Year
  Sex: Female

DRUGS (1)
  1. COSENTYX [Suspect]
     Active Substance: SECUKINUMAB
     Indication: PSORIATIC ARTHROPATHY
     Dosage: 150 MG, QMO, BENEATH THE SKIN
     Route: 058
     Dates: start: 20180329

REACTIONS (7)
  - Dyspnoea [Unknown]
  - Stress [Unknown]
  - Arthralgia [Unknown]
  - Head discomfort [Unknown]
  - Anxiety [Unknown]
  - Tinnitus [Unknown]
  - Therapeutic response shortened [Unknown]

NARRATIVE: CASE EVENT DATE: 20180622
